FAERS Safety Report 17785692 (Version 1)
Quarter: 2020Q2

REPORT INFORMATION
  Report Type: Spontaneous
  Country: AT (occurrence: AT)
  Receive Date: 20200514
  Receipt Date: 20200514
  Transmission Date: 20200714
  Serious: Yes (Other)
  Sender: FDA-Public Use
  Company Number: AT-ELI_LILLY_AND_COMPANY-AT202005002618

PATIENT
  Age: 72 Year
  Sex: Female

DRUGS (3)
  1. PLATINUM [Suspect]
     Active Substance: PLATINUM
     Indication: LUNG ADENOCARCINOMA
     Dosage: UNK, UNKNOWN
     Route: 065
     Dates: start: 2019
  2. PEMETREXED. [Suspect]
     Active Substance: PEMETREXED
     Indication: LUNG ADENOCARCINOMA
     Dosage: UNK UNK, UNKNOWN
     Route: 065
     Dates: start: 2019
  3. KEYTRUDA [Suspect]
     Active Substance: PEMBROLIZUMAB
     Indication: LUNG ADENOCARCINOMA
     Dosage: UNK UNK, UNKNOWN
     Route: 065
     Dates: start: 2019

REACTIONS (10)
  - Pericardial effusion [Unknown]
  - Renal tubular necrosis [Unknown]
  - Fatigue [Unknown]
  - Renal arteriosclerosis [Unknown]
  - Gamma-glutamyltransferase increased [Unknown]
  - Nephritis [Unknown]
  - Blood lactate dehydrogenase increased [Unknown]
  - Right ventricular hypertrophy [Unknown]
  - Tricuspid valve incompetence [Unknown]
  - Myocarditis [Unknown]

NARRATIVE: CASE EVENT DATE: 201906
